FAERS Safety Report 9766966 (Version 2)
Quarter: 2014Q1

REPORT INFORMATION
  Report Type: Spontaneous
  Country: US (occurrence: US)
  Receive Date: 20131217
  Receipt Date: 20140214
  Transmission Date: 20141002
  Serious: No
  Sender: FDA-Public Use
  Company Number: US-B.I. PHARMACEUTICALS,INC./RIDGEFIELD-2013-BI-40222BP

PATIENT
  Age: 65 Year
  Sex: Female
  Weight: 68 kg

DRUGS (5)
  1. SPIRIVA [Suspect]
     Indication: CHRONIC OBSTRUCTIVE PULMONARY DISEASE
     Dosage: 18 MCG
     Route: 055
  2. PREMARIN [Concomitant]
     Route: 048
  3. NASONEX [Concomitant]
     Dosage: (NASAL SPRAY)
     Route: 045
  4. QVAR [Concomitant]
     Dosage: (INHALATION AEROSOL)
     Route: 055
  5. SUMATRIPTAN [Concomitant]
     Indication: MIGRAINE
     Route: 048

REACTIONS (3)
  - Wheezing [Recovered/Resolved]
  - Product quality issue [Not Recovered/Not Resolved]
  - Product quality issue [Not Recovered/Not Resolved]
